FAERS Safety Report 9486824 (Version 2)
Quarter: 2013Q3

REPORT INFORMATION
  Report Type: Spontaneous
  Country: GB (occurrence: GB)
  Receive Date: 20130829
  Receipt Date: 20130913
  Transmission Date: 20140515
  Serious: Yes (Hospitalization, Other)
  Sender: FDA-Public Use
  Company Number: GB-009507513-1308GBR009237

PATIENT
  Age: 66 Year
  Sex: Male
  Weight: 77 kg

DRUGS (8)
  1. VICTRELIS [Suspect]
     Dosage: 800 MG, TID
     Route: 048
     Dates: start: 20130426, end: 20130802
  2. PEGASYS [Suspect]
     Dosage: 1800 MICROGRAM, UNK
     Route: 058
     Dates: start: 20130319, end: 20130802
  3. COPEGUS [Suspect]
     Dosage: 600/400 MG
     Route: 048
     Dates: start: 20130319, end: 20130802
  4. COPEGUS [Suspect]
     Dosage: 400/200 MG
     Route: 048
     Dates: start: 2013, end: 20130802
  5. OMEPRAZOLE [Concomitant]
     Dosage: UNK
  6. ACETAMINOPHEN [Concomitant]
     Dosage: UNK
  7. RAMIPRIL [Concomitant]
     Dosage: UNK
  8. CORTICOSTEROIDS (UNSPECIFIED) [Concomitant]
     Indication: SEASONAL ALLERGY
     Route: 055

REACTIONS (4)
  - Pancytopenia [Not Recovered/Not Resolved]
  - Blister [Not Recovered/Not Resolved]
  - Rash pruritic [Not Recovered/Not Resolved]
  - Rash [Not Recovered/Not Resolved]
